FAERS Safety Report 6574368-4 (Version None)
Quarter: 2010Q1

REPORT INFORMATION
  Report Type: 
  Country: None (occurrence: None)
  Receive Date: 20100208
  Receipt Date: 20100203
  Transmission Date: 20100710
  Serious: Yes (Hospitalization)
  Sender: FDA-Public Use
  Company Number: FR-MERCK-1002FRA00022

PATIENT
  Age: 53 Year
  Sex: Male

DRUGS (2)
  1. NOROXIN [Suspect]
     Indication: PROSTATITIS
     Route: 048
     Dates: start: 20100102, end: 20100126
  2. BACTRIM [Concomitant]
     Indication: PROSTATITIS
     Route: 048
     Dates: start: 20091201, end: 20091201

REACTIONS (1)
  - ERYTHEMA NODOSUM [None]
